FAERS Safety Report 4908417-3 (Version None)
Quarter: 2006Q1

REPORT INFORMATION
  Report Type: 
  Country: None (occurrence: None)
  Receive Date: 20060210
  Receipt Date: 20050322
  Transmission Date: 20060701
  Serious: No
  Sender: FDA-Public Use
  Company Number: US-GLAXOSMITHKLINE-A0550852A

PATIENT
  Sex: Female

DRUGS (2)
  1. PAXIL CR [Suspect]
     Indication: PANIC DISORDER
     Dosage: 25MG PER DAY
     Route: 048
     Dates: start: 20020501
  2. PRENATAL VITAMINS [Concomitant]

REACTIONS (3)
  - ANXIETY [None]
  - DRUG EXPOSURE DURING PREGNANCY [None]
  - FATIGUE [None]
